FAERS Safety Report 11070389 (Version 1)
Quarter: 2015Q2

REPORT INFORMATION
  Report Type: Spontaneous
  Country: US (occurrence: US)
  Receive Date: 20150427
  Receipt Date: 20150427
  Transmission Date: 20150821
  Serious: Yes (Hospitalization, Other)
  Sender: FDA-Public Use
  Company Number: US-PFIZER INC-2015140230

PATIENT
  Age: 43 Year
  Sex: Female
  Weight: 54 kg

DRUGS (2)
  1. GABAPENTIN. [Suspect]
     Active Substance: GABAPENTIN
     Indication: NEURALGIA
     Dosage: 600 MG, 1X/DAY
     Route: 048
     Dates: start: 201501
  2. TRAMADOL [Concomitant]
     Active Substance: TRAMADOL

REACTIONS (3)
  - Drug effect incomplete [Unknown]
  - Tethered cord syndrome [Recovering/Resolving]
  - Arachnoiditis [Unknown]

NARRATIVE: CASE EVENT DATE: 201501
